FAERS Safety Report 21661818 (Version 6)
Quarter: 2023Q2

REPORT INFORMATION
  Report Type: Report from Study
  Country: US (occurrence: US)
  Receive Date: 20221130
  Receipt Date: 20230410
  Transmission Date: 20230722
  Serious: No
  Sender: FDA-Public Use
  Company Number: US-002147023-NVSC2022US276780

PATIENT
  Age: 27 Year
  Sex: Female

DRUGS (2)
  1. KESIMPTA [Suspect]
     Active Substance: OFATUMUMAB
     Indication: Product used for unknown indication
     Dosage: 20 MG, QW
     Route: 058
     Dates: start: 20221117
  2. KESIMPTA [Suspect]
     Active Substance: OFATUMUMAB
     Dosage: 20 MG, QW
     Route: 058
     Dates: start: 20221125

REACTIONS (6)
  - Pain [Recovered/Resolved]
  - Depression [Not Recovered/Not Resolved]
  - Weight increased [Unknown]
  - Vomiting [Unknown]
  - Asthenia [Unknown]
  - Injection site pain [Unknown]

NARRATIVE: CASE EVENT DATE: 20221117
